FAERS Safety Report 8014719-7 (Version None)
Quarter: 2011Q4

REPORT INFORMATION
  Report Type: 
  Country: None (occurrence: None)
  Receive Date: 20111229
  Receipt Date: 20111221
  Transmission Date: 20120403
  Serious: Yes (Hospitalization)
  Sender: FDA-Public Use
  Company Number: JP-ABBOTT-11P-087-0721046-00

PATIENT
  Sex: Male

DRUGS (12)
  1. ENTERAL NUTRITION THERAPY [Concomitant]
     Indication: PRODUCT USED FOR UNKNOWN INDICATION
     Dates: start: 20110330, end: 20110531
  2. HUMIRA [Suspect]
     Route: 058
     Dates: start: 20110429, end: 20110429
  3. MIXED AMINO ACID_CARBOHYDRATE_ELECTROLYTE COMBINED DRUG [Concomitant]
     Indication: PRODUCT USED FOR UNKNOWN INDICATION
     Route: 042
     Dates: start: 20110401, end: 20110408
  4. MESALAMINE [Concomitant]
     Dates: start: 20110330, end: 20110531
  5. ENTERAL NUTRITION THERAPY [Concomitant]
  6. PARENTERAL NUTRITION THERAPY [Concomitant]
     Indication: PRODUCT USED FOR UNKNOWN INDICATION
     Dates: start: 20110408, end: 20110510
  7. HUMIRA [Suspect]
     Indication: CROHN'S DISEASE
     Route: 058
     Dates: start: 20110401, end: 20110401
  8. HUMIRA [Suspect]
     Route: 058
     Dates: start: 20110513, end: 20110531
  9. LACTOMIN [Concomitant]
     Indication: PROPHYLAXIS AGAINST DIARRHOEA
     Route: 048
     Dates: start: 20110330, end: 20110531
  10. PREDNISOLONE [Concomitant]
     Indication: CROHN'S DISEASE
     Route: 048
     Dates: start: 20110423, end: 20110531
  11. MESALAMINE [Concomitant]
     Indication: CROHN'S DISEASE
     Route: 048
     Dates: start: 20110323, end: 20110419
  12. OMEPRAZOLE [Concomitant]
     Indication: GASTRITIS PROPHYLAXIS
     Dates: start: 20110330, end: 20110531

REACTIONS (1)
  - PYREXIA [None]
